FAERS Safety Report 10235718 (Version 1)
Quarter: 2014Q2

REPORT INFORMATION
  Report Type: Report from Study
  Country: DE (occurrence: DE)
  Receive Date: 20140613
  Receipt Date: 20140613
  Transmission Date: 20141212
  Serious: Yes (Death, Hospitalization)
  Sender: FDA-Public Use
  Company Number: DE-TEVA-487792GER

PATIENT
  Age: 66 Year
  Sex: Male
  Weight: 72 kg

DRUGS (4)
  1. EPORATIO [Suspect]
     Indication: ANAEMIA
     Dosage: LAST DOSE PRIOR TO AE: 16-MAY-2014
     Route: 058
     Dates: start: 20140404, end: 20140516
  2. DOXORUBICIN [Suspect]
     Indication: CHEMOTHERAPY
     Dosage: LAST DOSE PRIOR TO AE: 13-MAY-2014
     Dates: start: 20140128, end: 20140513
  3. VINCRISTINE [Suspect]
     Indication: CHEMOTHERAPY
     Dosage: LAST DOSE PRIOR TO AE: 13-MAY-2014
     Dates: start: 20140128, end: 20140513
  4. CYCLOPHOSPHAMIDE [Suspect]
     Indication: CHEMOTHERAPY
     Dosage: LAST DOSE PRIOR TO AE: 13-MAY-2014
     Dates: start: 20140128, end: 20140513

REACTIONS (1)
  - Pneumonia [Fatal]
